FAERS Safety Report 9497482 (Version 1)
Quarter: 2013Q3

REPORT INFORMATION
  Report Type: Spontaneous
  Country: US (occurrence: US)
  Receive Date: 20130904
  Receipt Date: 20130904
  Transmission Date: 20140515
  Serious: No
  Sender: FDA-Public Use
  Company Number: US-AMGEN-USASP2013058022

PATIENT
  Age: 32 Year
  Sex: Female

DRUGS (2)
  1. ENBREL [Suspect]
     Indication: RHEUMATOID ARTHRITIS
     Dosage: 50 MG, QWK
     Route: 065
     Dates: start: 20130503
  2. PLAQUENIL                          /00072602/ [Concomitant]
     Dosage: 200 MG, BID FOR 1.5 YEARS

REACTIONS (1)
  - Arthralgia [Not Recovered/Not Resolved]
